FAERS Safety Report 13694451 (Version 1)
Quarter: 2017Q2

REPORT INFORMATION
  Report Type: Spontaneous
  Country: US (occurrence: US)
  Receive Date: 20170627
  Receipt Date: 20170627
  Transmission Date: 20170830
  Serious: No
  Sender: FDA-Public Use
  Company Number: US-PURDUE-USA-2016-0132839

PATIENT
  Age: 72 Year
  Sex: Female
  Weight: 65.76 kg

DRUGS (2)
  1. DRONABINOL CAPSULES [Suspect]
     Active Substance: DRONABINOL
     Indication: NAUSEA
     Dosage: 5 MG, QID
     Route: 048
     Dates: start: 20160809
  2. COMPAZINE                          /00013302/ [Concomitant]
     Active Substance: PROCHLORPERAZINE EDISYLATE
     Indication: NAUSEA
     Route: 048

REACTIONS (2)
  - Feeling drunk [Unknown]
  - Insomnia [Unknown]

NARRATIVE: CASE EVENT DATE: 20160809
